FAERS Safety Report 20605967 (Version 1)
Quarter: 2022Q1

REPORT INFORMATION
  Report Type: Spontaneous
  Country: DE (occurrence: DE)
  Receive Date: 20220317
  Receipt Date: 20220317
  Transmission Date: 20220423
  Serious: Yes (Hospitalization)
  Sender: FDA-Public Use
  Company Number: DE-STRIDES ARCOLAB LIMITED-2022SP002585

PATIENT
  Age: 6 Decade
  Sex: Male

DRUGS (15)
  1. PREDNISOLONE [Suspect]
     Active Substance: PREDNISOLONE
     Indication: Renal transplant
     Dosage: 250 MILLIGRAM (AT DAY 0)
     Route: 065
     Dates: start: 202003
  2. PREDNISOLONE [Suspect]
     Active Substance: PREDNISOLONE
     Dosage: 125 MILLIGRAM (DAY 1)
     Route: 065
     Dates: start: 2020
  3. PREDNISOLONE [Suspect]
     Active Substance: PREDNISOLONE
     Dosage: 50 MILLIGRAM (DAY 2-5)
     Route: 065
     Dates: start: 2020
  4. PREDNISOLONE [Suspect]
     Active Substance: PREDNISOLONE
     Dosage: 20 MILLIGRAM (DAY 6-10)
     Route: 065
     Dates: start: 2020
  5. PREDNISOLONE [Suspect]
     Active Substance: PREDNISOLONE
     Dosage: 15 MILLIGRAM, PER DAY
     Route: 065
     Dates: start: 2020
  6. PREDNISOLONE [Suspect]
     Active Substance: PREDNISOLONE
     Dosage: UNK (10-20MG PER DAY; MAINTENANCE THERAPY)
     Route: 065
     Dates: start: 2020
  7. PREDNISOLONE [Suspect]
     Active Substance: PREDNISOLONE
     Dosage: UNK (INCREASED ON DAY 126)
     Route: 065
     Dates: start: 2020
  8. MYCOPHENOLATE MOFETIL [Suspect]
     Active Substance: MYCOPHENOLATE MOFETIL
     Indication: Renal transplant
     Dosage: 2000 MILLIGRAM PER DAY (INDUCTION THERAPY AND MAINTENANCE THERAPY)
     Route: 065
     Dates: start: 2020
  9. TACROLIMUS [Suspect]
     Active Substance: TACROLIMUS
     Indication: Renal transplant
     Dosage: 10 MILLIGRAM (DAY 0)
     Route: 065
     Dates: start: 202003
  10. TACROLIMUS [Suspect]
     Active Substance: TACROLIMUS
     Dosage: 8 MILLIGRAM (DAY 1)
     Route: 065
     Dates: start: 2020
  11. TACROLIMUS [Suspect]
     Active Substance: TACROLIMUS
     Dosage: 5.5 MILLIGRAM (DAY 2)
     Route: 065
     Dates: start: 2020
  12. TACROLIMUS [Suspect]
     Active Substance: TACROLIMUS
     Dosage: 5 MILLIGRAM (DAY 3-4)
     Route: 065
     Dates: start: 2020
  13. TACROLIMUS [Suspect]
     Active Substance: TACROLIMUS
     Dosage: 4 MILLIGRAM PER DAY
     Route: 065
     Dates: start: 2020
  14. TACROLIMUS [Suspect]
     Active Substance: TACROLIMUS
     Dosage: UNK (4-6MG PER DAY; MAINTENANCE THERAPY
     Route: 065
     Dates: start: 2020
  15. BASILIXIMAB [Suspect]
     Active Substance: BASILIXIMAB
     Indication: Renal transplant
     Dosage: 20 MILLIGRAM (DAY 0 AND DAY 4)
     Route: 065
     Dates: start: 202003

REACTIONS (5)
  - Acute kidney injury [Unknown]
  - Viral mutation identified [Recovered/Resolved]
  - Escherichia urinary tract infection [Recovered/Resolved]
  - COVID-19 [Recovered/Resolved]
  - Transplant failure [Unknown]

NARRATIVE: CASE EVENT DATE: 20200101
